FAERS Safety Report 15845604 (Version 1)
Quarter: 2019Q1

REPORT INFORMATION
  Report Type: Spontaneous
  Country: US (occurrence: US)
  Receive Date: 20190119
  Receipt Date: 20190119
  Transmission Date: 20190417
  Serious: No
  Sender: FDA-Public Use
  Company Number: US-TORRENT-00006897

PATIENT
  Age: 72 Year
  Sex: Male
  Weight: 83 kg

DRUGS (4)
  1. FOLIC ACID. [Concomitant]
     Active Substance: FOLIC ACID
     Indication: PRODUCT USED FOR UNKNOWN INDICATION
     Dosage: ONE A DAY
  2. GABAPENTIN. [Concomitant]
     Active Substance: GABAPENTIN
     Indication: PRODUCT USED FOR UNKNOWN INDICATION
     Dosage: THREE TIMES A DAY
  3. CARBAMAZEPINE TABLET [Suspect]
     Active Substance: CARBAMAZEPINE
     Indication: SEIZURE
     Dosage: TWO TABLETS IN MORNING , 2 TABLETS AT NOON, 1 TABLET AT SUPPER TIME AND 1 AT BED TIME
     Dates: start: 20180807, end: 201808
  4. DILANTIN [Concomitant]
     Active Substance: PHENYTOIN
     Indication: PRODUCT USED FOR UNKNOWN INDICATION
     Dosage: 1 TAB PER DAY

REACTIONS (1)
  - Balance disorder [Recovered/Resolved]
